FAERS Safety Report 23835083 (Version 1)
Quarter: 2024Q2

REPORT INFORMATION
  Report Type: Spontaneous
  Country: US (occurrence: US)
  Receive Date: 20240509
  Receipt Date: 20240509
  Transmission Date: 20240716
  Serious: No
  Sender: FDA-Public Use
  Company Number: US-BRISTOL-MYERS SQUIBB COMPANY-2024-071608

PATIENT
  Age: 71 Year
  Sex: Female

DRUGS (1)
  1. OPDUALAG [Suspect]
     Active Substance: NIVOLUMAB\RELATLIMAB-RMBW
     Indication: Malignant melanoma
     Dosage: DOSE : 480-160 MG;     FREQ : EVERY 28 DAYS
     Route: 042

REACTIONS (1)
  - Product prescribing issue [Unknown]
